FAERS Safety Report 5031040-X (Version None)
Quarter: 2006Q2

REPORT INFORMATION
  Report Type: 
  Country: None (occurrence: None)
  Receive Date: 20060615
  Receipt Date: 20050421
  Transmission Date: 20061013
  Serious: Yes (Death)
  Sender: FDA-Public Use
  Company Number: 10940

PATIENT

DRUGS (10)
  1. MITOXANTRONE [Suspect]
     Indication: NON-HODGKIN'S LYMPHOMA
     Dosage: 8 MG/M2 OTH IV
     Route: 042
  2. MITOXANTRONE [Suspect]
     Indication: NON-HODGKIN'S LYMPHOMA
  3. DOXORUBICIN [Suspect]
     Indication: NON-HODGKIN'S LYMPHOMA
  4. VINCRISTINE [Suspect]
     Indication: NON-HODGKIN'S LYMPHOMA
  5. ETOPOSIDE [Suspect]
     Indication: NON-HODGKIN'S LYMPHOMA
  6. CHLORAMBUCIL [Suspect]
     Indication: NON-HODGKIN'S LYMPHOMA
     Dosage: 3 MG/M2 OTH PO
     Route: 048
  7. PREDNISONE [Suspect]
     Indication: NON-HODGKIN'S LYMPHOMA
     Dosage: 25 MG OTH PO
     Route: 048
  8. PREDNISOLONE [Suspect]
     Indication: NON-HODGKIN'S LYMPHOMA
  9. CYCLOPHOSPHAMIDE [Suspect]
     Indication: NON-HODGKIN'S LYMPHOMA
  10. IFOSFAMIDE [Suspect]
     Indication: NON-HODGKIN'S LYMPHOMA

REACTIONS (4)
  - ACUTE MYELOID LEUKAEMIA [None]
  - DRUG TOXICITY [None]
  - MYELODYSPLASTIC SYNDROME [None]
  - PNEUMONIA [None]
